FAERS Safety Report 5734447-8 (Version None)
Quarter: 2008Q2

REPORT INFORMATION
  Report Type: 
  Country: None (occurrence: None)
  Receive Date: 20080508
  Receipt Date: 20080424
  Transmission Date: 20081010
  Serious: Yes (Hospitalization)
  Sender: FDA-Public Use
  Company Number: 2008BI010684

PATIENT
  Age: 32 Year
  Sex: Female

DRUGS (1)
  1. AVONEX [Suspect]
     Indication: MULTIPLE SCLEROSIS
     Dosage: 30 UG; QW; IM
     Route: 030
     Dates: start: 20060701

REACTIONS (4)
  - CENTRAL NERVOUS SYSTEM LESION [None]
  - FEELING HOT [None]
  - INTERVERTEBRAL DISC PROTRUSION [None]
  - SENSORY DISTURBANCE [None]
